FAERS Safety Report 9513296 (Version 2)
Quarter: 2013Q4

REPORT INFORMATION
  Report Type: Spontaneous
  Country: JP (occurrence: JP)
  Receive Date: 20130910
  Receipt Date: 20131206
  Transmission Date: 20140711
  Serious: Yes (Other)
  Sender: FDA-Public Use
  Company Number: PHHY2013JP095313

PATIENT
  Age: 80 Year
  Sex: Female

DRUGS (1)
  1. NEORAL [Suspect]
     Indication: MYELODYSPLASTIC SYNDROME
     Dosage: 50 MG, DAILY
     Route: 048

REACTIONS (1)
  - Breast cancer [Not Recovered/Not Resolved]
